FAERS Safety Report 4811743-X (Version None)
Quarter: 2005Q4

REPORT INFORMATION
  Report Type: 
  Country: None (occurrence: None)
  Receive Date: 20051025
  Receipt Date: 20051010
  Transmission Date: 20060501
  Serious: Yes (Death, Hospitalization)
  Sender: FDA-Public Use
  Company Number: US-2005-009610

PATIENT
  Age: 55 Year
  Sex: Male

DRUGS (14)
  1. BETASERON [Suspect]
     Indication: RELAPSING-REMITTING MULTIPLE SCLEROSIS
     Dosage: SUBCUTANEOUS
     Route: 058
     Dates: start: 19940101, end: 20050107
  2. MULTIVITASMINS (RETINOL, PANTHENOL) [Concomitant]
  3. BACLOFEN [Concomitant]
  4. COREG [Concomitant]
  5. DETROL-SLOW RELEASE (TOLTERODINE L-TARTRATE) [Concomitant]
  6. EFEXOR-SLOW RLEASE  (VENLAFAXINE HYDROCHLORIDE) [Concomitant]
  7. DEMADEX [Concomitant]
  8. ZOLOFT [Concomitant]
  9. NEURONTIN [Concomitant]
  10. KLONOPIN [Concomitant]
  11. COUMADIN (NITROFURANTOIN) [Concomitant]
  12. LEVAQUIN [Concomitant]
  13. MIRALAX [Concomitant]
  14. PROVIGIL [Concomitant]

REACTIONS (4)
  - CARDIAC FAILURE CONGESTIVE [None]
  - CARDIOMYOPATHY [None]
  - CONDITION AGGRAVATED [None]
  - MULTIPLE SCLEROSIS [None]
